FAERS Safety Report 7592038-0 (Version None)
Quarter: 2011Q3

REPORT INFORMATION
  Report Type: 
  Country: None (occurrence: None)
  Receive Date: 20110706
  Receipt Date: 20110701
  Transmission Date: 20111222
  Serious: Yes (Hospitalization)
  Sender: FDA-Public Use
  Company Number: JP-SANOFI-AVENTIS-2011SA037606

PATIENT
  Age: 22 Year
  Sex: Male

DRUGS (2)
  1. ALLEGRA [Suspect]
     Indication: DERMATITIS ATOPIC
     Route: 048
     Dates: start: 20090704, end: 20110305
  2. OLOPATADINE HCL [Concomitant]
     Indication: DERMATITIS ATOPIC
     Route: 048
     Dates: start: 20090704, end: 20110305

REACTIONS (2)
  - JAUNDICE [None]
  - HEPATITIS ACUTE [None]
